FAERS Safety Report 7503682-0 (Version None)
Quarter: 2011Q2

REPORT INFORMATION
  Report Type: 
  Country: None (occurrence: None)
  Receive Date: 20110525
  Receipt Date: 20110519
  Transmission Date: 20111010
  Serious: Yes (Hospitalization)
  Sender: FDA-Public Use
  Company Number: DE-US-EMD SERONO, INC.-7056399

PATIENT
  Sex: Male
  Weight: 78 kg

DRUGS (1)
  1. REBIF [Suspect]
     Indication: MULTIPLE SCLEROSIS
     Route: 058
     Dates: start: 20050101

REACTIONS (2)
  - INFLAMMATORY MARKER INCREASED [None]
  - BRONCHOPNEUMONIA [None]
